FAERS Safety Report 12906275 (Version 1)
Quarter: 2016Q4

REPORT INFORMATION
  Report Type: Spontaneous
  Country: US (occurrence: US)
  Receive Date: 20161102
  Receipt Date: 20161102
  Transmission Date: 20170207
  Serious: Yes (Disabling, Other)
  Sender: FDA-Public Use
  Company Number: None

PATIENT
  Age: 47 Year
  Sex: Female
  Weight: 92.99 kg

DRUGS (5)
  1. VITAMIN D3 [Concomitant]
     Active Substance: CHOLECALCIFEROL
  2. LISINOPRIL. [Concomitant]
     Active Substance: LISINOPRIL
  3. METFORMIN [Concomitant]
     Active Substance: METFORMIN HYDROCHLORIDE
  4. VITAMIN D [Concomitant]
     Active Substance: CHOLECALCIFEROL
  5. FARXIGA [Suspect]
     Active Substance: DAPAGLIFLOZIN PROPANEDIOL
     Indication: THERAPY CHANGE
     Dosage: FARXIGA - 1 TABLET ONCE DAILY - PO
     Route: 048
     Dates: start: 20150723, end: 20150728

REACTIONS (4)
  - Vulvovaginal pruritus [None]
  - Vulvovaginal swelling [None]
  - Vulvovaginal mycotic infection [None]
  - Rash [None]

NARRATIVE: CASE EVENT DATE: 20150725
